FAERS Safety Report 8402122-7 (Version None)
Quarter: 2012Q2

REPORT INFORMATION
  Report Type: 
  Country: None (occurrence: None)
  Receive Date: 20120601
  Receipt Date: 20120522
  Transmission Date: 20120825
  Serious: Yes (Other)
  Sender: FDA-Public Use
  Company Number: JP-JNJFOC-20110805995

PATIENT
  Sex: Female
  Weight: 49 kg

DRUGS (15)
  1. PREDNISOLONE [Suspect]
     Dosage: AT 13.31
     Route: 048
     Dates: start: 20110627, end: 20110708
  2. LOXONIN [Concomitant]
     Indication: BACK PAIN
     Route: 048
     Dates: start: 20110801, end: 20110904
  3. PREDNISOLONE [Suspect]
     Indication: RASH
     Route: 048
     Dates: start: 20110801, end: 20110811
  4. PREDNISOLONE [Suspect]
     Route: 048
     Dates: start: 20110811, end: 20110822
  5. PREDNISOLONE [Suspect]
     Dosage: AT 8.43
     Route: 048
     Dates: start: 20110624, end: 20110627
  6. ISENTRESS [Concomitant]
     Indication: HIV INFECTION
     Route: 048
     Dates: start: 20110613
  7. MYONAL [Concomitant]
     Indication: BACK PAIN
     Route: 048
     Dates: start: 20110801, end: 20110904
  8. PREDNISOLONE [Suspect]
     Route: 048
     Dates: start: 20110716, end: 20110719
  9. PREDNISOLONE [Suspect]
     Route: 048
     Dates: start: 20110712, end: 20110716
  10. INTELENCE [Suspect]
     Indication: HIV INFECTION
     Route: 048
     Dates: start: 20110613
  11. PREDNISOLONE [Suspect]
     Route: 048
     Dates: start: 20110719, end: 20110801
  12. PREDNISOLONE [Suspect]
     Route: 048
     Dates: start: 20110708, end: 20110712
  13. TRUVADA [Concomitant]
     Indication: HIV INFECTION
     Route: 048
     Dates: start: 20110613
  14. TRUVADA [Concomitant]
     Route: 048
     Dates: start: 20070401, end: 20110612
  15. URSO 250 [Concomitant]
     Indication: HEPATIC FUNCTION ABNORMAL
     Route: 048
     Dates: start: 20120319

REACTIONS (6)
  - GASTRIC ULCER [None]
  - RASH [None]
  - INSOMNIA [None]
  - LIVER DISORDER [None]
  - BACK PAIN [None]
  - ORAL CANDIDIASIS [None]
